FAERS Safety Report 17956268 (Version 1)
Quarter: 2020Q2

REPORT INFORMATION
  Report Type: Spontaneous
  Country: TR (occurrence: TR)
  Receive Date: 20200629
  Receipt Date: 20200629
  Transmission Date: 20200714
  Serious: Yes (Hospitalization, Other)
  Sender: FDA-Public Use
  Company Number: TR-BION-008792

PATIENT
  Age: 27 Year
  Sex: Female

DRUGS (1)
  1. VALPROIC ACID UNKNOWN PRODUCT [Suspect]
     Active Substance: VALPROIC ACID

REACTIONS (4)
  - Overdose [Unknown]
  - Toxicity to various agents [Unknown]
  - Suicide attempt [Unknown]
  - Acute respiratory distress syndrome [Unknown]
